FAERS Safety Report 20870947 (Version 1)
Quarter: 2022Q2

REPORT INFORMATION
  Report Type: Other
  Country: FR (occurrence: FR)
  Receive Date: 20220525
  Receipt Date: 20220525
  Transmission Date: 20220720
  Serious: Yes (Other)
  Sender: FDA-Public Use
  Company Number: None

PATIENT

DRUGS (4)
  1. ORGARAN [Suspect]
     Active Substance: DANAPAROID SODIUM
     Indication: Heparin-induced thrombocytopenia
     Dosage: NON CONNUE
     Route: 042
     Dates: start: 20220307, end: 20220310
  2. HEPARIN SODIUM [Suspect]
     Active Substance: HEPARIN SODIUM
     Indication: Haemodialysis
     Dosage: 12000 IU, QD
     Route: 042
     Dates: start: 20220227, end: 20220307
  3. MODERNA COVID-19 VACCINE [Concomitant]
     Active Substance: ELASOMERAN
     Indication: Product used for unknown indication
     Dosage: VACCIN CONTRE LA COVID-19 MODERNA 0,20 MG/ML, SUSPENSION INJECTABLE - VACCIN ARNM COVID-19
     Route: 065
  4. ASTRAZENECA COVID-19 VACCINE [Concomitant]
     Active Substance: AZD-1222
     Indication: Product used for unknown indication
     Dosage: UNK
     Route: 065

REACTIONS (2)
  - Heparin-induced thrombocytopenia [Recovered/Resolved]
  - Condition aggravated [Recovered/Resolved]

NARRATIVE: CASE EVENT DATE: 20220301
